FAERS Safety Report 23642181 (Version 10)
Quarter: 2025Q2

REPORT INFORMATION
  Report Type: Spontaneous
  Country: JP (occurrence: JP)
  Receive Date: 20240318
  Receipt Date: 20250406
  Transmission Date: 20250717
  Serious: Yes (Other)
  Sender: BRISTOL MYERS SQUIBB
  Company Number: JP-BRISTOL-MYERS SQUIBB COMPANY-2024-041314

PATIENT
  Age: 67 Year
  Sex: Male
  Weight: 67 kg

DRUGS (5)
  1. YERVOY [Suspect]
     Active Substance: IPILIMUMAB
     Indication: Non-small cell lung cancer
     Route: 041
     Dates: start: 20230904, end: 20240130
  2. OPDIVO [Suspect]
     Active Substance: NIVOLUMAB
     Indication: Non-small cell lung cancer
     Route: 041
     Dates: start: 20230904, end: 20240130
  3. CARBOPLATIN [Suspect]
     Active Substance: CARBOPLATIN
     Indication: Non-small cell lung cancer
     Route: 041
     Dates: start: 20230904, end: 20230926
  4. PEMETREXED [Suspect]
     Active Substance: PEMETREXED
     Indication: Non-small cell lung cancer
     Route: 041
     Dates: start: 20230904, end: 20230926
  5. CANAGLIFLOZIN\TENELIGLIPTIN [Concomitant]
     Active Substance: CANAGLIFLOZIN\TENELIGLIPTIN
     Indication: Product used for unknown indication
     Route: 048

REACTIONS (5)
  - Cytokine release syndrome [Recovered/Resolved]
  - Rash [Recovered/Resolved]
  - Infusion related reaction [Unknown]
  - Weight decreased [Unknown]
  - Immune-mediated adverse reaction [Unknown]

NARRATIVE: CASE EVENT DATE: 20230919
